FAERS Safety Report 16665067 (Version 1)
Quarter: 2019Q3

REPORT INFORMATION
  Report Type: Spontaneous
  Country: US (occurrence: US)
  Receive Date: 20190803
  Receipt Date: 20190803
  Transmission Date: 20191004
  Serious: Yes (Other)
  Sender: FDA-Public Use
  Company Number: US-ACCORD-072685

PATIENT
  Age: 74 Year
  Sex: Female

DRUGS (27)
  1. LOSARTAN. [Concomitant]
     Active Substance: LOSARTAN
     Dates: start: 201103
  2. SIMVASTATIN. [Concomitant]
     Active Substance: SIMVASTATIN
     Dates: start: 2011
  3. PAROXETINE. [Concomitant]
     Active Substance: PAROXETINE
     Dates: start: 2011, end: 2015
  4. ANASTROZOLE. [Concomitant]
     Active Substance: ANASTROZOLE
     Dates: start: 20150616
  5. CLONIDINE. [Concomitant]
     Active Substance: CLONIDINE
     Dates: start: 2011
  6. DIPHENHYDRAMINE. [Concomitant]
     Active Substance: DIPHENHYDRAMINE
  7. MOXIFLOXACIN/MOXIFLOXACIN HYDROCHLORIDE [Concomitant]
  8. DIAZEPAM. [Concomitant]
     Active Substance: DIAZEPAM
  9. TYLENOL [Concomitant]
     Active Substance: ACETAMINOPHEN
  10. EMERGEN-C [Concomitant]
     Active Substance: VITAMINS
  11. DEXAMETHASONE. [Concomitant]
     Active Substance: DEXAMETHASONE
  12. METOPROLOL. [Concomitant]
     Active Substance: METOPROLOL
     Dates: start: 2011
  13. ELIDEL [Concomitant]
     Active Substance: PIMECROLIMUS
  14. DOCETAXEL ACCORD [Suspect]
     Active Substance: DOCETAXEL
     Indication: BREAST CANCER
     Dates: start: 20141118, end: 20150120
  15. TRIAZOLAM. [Concomitant]
     Active Substance: TRIAZOLAM
     Dates: start: 2011
  16. PREMPRO [Concomitant]
     Active Substance: ESTROGENS, CONJUGATED\MEDROXYPROGESTERONE ACETATE
     Dates: start: 1996
  17. ONDANSETRON [Concomitant]
     Active Substance: ONDANSETRON
  18. ERGOCALCIFEROL. [Concomitant]
     Active Substance: ERGOCALCIFEROL
  19. HYDROCODONE [Concomitant]
     Active Substance: HYDROCODONE
  20. CYTOXAN [Suspect]
     Active Substance: CYCLOPHOSPHAMIDE
     Indication: BREAST CANCER
     Dates: start: 20141118, end: 20150120
  21. AMLODIPINE [Concomitant]
     Active Substance: AMLODIPINE BESYLATE
     Dates: start: 2011
  22. VENLAFAXINE/VENLAFAXINE HYDROCHLORIDE [Concomitant]
     Dates: start: 2011
  23. LIDOCAINE/PRILOCAINE [Concomitant]
  24. CALCIUM CARBONATE/CALCIUM LACTOGLUCONATE [Concomitant]
  25. CLARITIN [Concomitant]
     Active Substance: LORATADINE
  26. HYDROCHLOROTHIAZIDE. [Concomitant]
     Active Substance: HYDROCHLOROTHIAZIDE
     Dates: start: 2011
  27. TRIAMCINOLONE [Concomitant]
     Active Substance: TRIAMCINOLONE

REACTIONS (1)
  - Alopecia [Not Recovered/Not Resolved]

NARRATIVE: CASE EVENT DATE: 201412
